FAERS Safety Report 16395512 (Version 1)
Quarter: 2019Q2

REPORT INFORMATION
  Report Type: Report from Study
  Country: US (occurrence: US)
  Receive Date: 20190605
  Receipt Date: 20190605
  Transmission Date: 20190711
  Serious: Yes (Hospitalization, Other)
  Sender: FDA-Public Use
  Company Number: US-ASTRAZENECA-2019SE81483

PATIENT
  Sex: Female

DRUGS (3)
  1. OMEPRAZOLE. [Suspect]
     Active Substance: OMEPRAZOLE
     Route: 048
  2. SYMBICORT [Suspect]
     Active Substance: BUDESONIDE\FORMOTEROL FUMARATE DIHYDRATE
     Route: 055
  3. TAGRISSO [Suspect]
     Active Substance: OSIMERTINIB
     Route: 048

REACTIONS (25)
  - Agitation [Unknown]
  - Stress [Unknown]
  - Somnolence [Unknown]
  - Dyskinesia [Unknown]
  - Insomnia [Unknown]
  - Thinking abnormal [Unknown]
  - Flight of ideas [Unknown]
  - Eye disorder [Unknown]
  - Musculoskeletal chest pain [Unknown]
  - Anxiety [Unknown]
  - Psychomotor hyperactivity [Unknown]
  - Tremor [Unknown]
  - Mental disorder [Unknown]
  - Decreased appetite [Unknown]
  - Weight increased [Unknown]
  - Brain oedema [Unknown]
  - Confusional state [Unknown]
  - Cough [Unknown]
  - Emotional disorder [Unknown]
  - Dyspnoea [Unknown]
  - Fatigue [Unknown]
  - Mania [Unknown]
  - Speech disorder [Unknown]
  - Dizziness [Unknown]
  - Personality change [Unknown]
